FAERS Safety Report 7210402-6 (Version None)
Quarter: 2011Q1

REPORT INFORMATION
  Report Type: 
  Country: None (occurrence: None)
  Receive Date: 20110105
  Receipt Date: 20101227
  Transmission Date: 20110831
  Serious: Yes (Hospitalization)
  Sender: FDA-Public Use
  Company Number: PHHO2010US18989

PATIENT
  Sex: Female
  Weight: 67 kg

DRUGS (3)
  1. LOPRESSOR [Suspect]
     Indication: ATRIAL FIBRILLATION
     Dosage: 120 MG
     Dates: start: 20101125, end: 20101130
  2. PLACEBO [Suspect]
     Indication: CHRONIC OBSTRUCTIVE PULMONARY DISEASE
     Dosage: CODE NOT BROKEN
     Dates: start: 20100217, end: 20101212
  3. CARDIAZEM [Suspect]
     Indication: ATRIAL FIBRILLATION
     Dosage: UNK
     Dates: start: 20101125, end: 20101130

REACTIONS (2)
  - BRADYCARDIA [None]
  - ATRIAL FIBRILLATION [None]
